FAERS Safety Report 4635061-8 (Version None)
Quarter: 2005Q2

REPORT INFORMATION
  Report Type: 
  Country: None (occurrence: None)
  Receive Date: 20050414
  Receipt Date: 20050405
  Transmission Date: 20051028
  Serious: Yes (Other)
  Sender: FDA-Public Use
  Company Number: DE-ROCHE-400865

PATIENT

DRUGS (3)
  1. PEGASYS [Suspect]
     Route: 058
  2. COPEGUS [Suspect]
     Route: 048
  3. ANTIRETROVIRAL NOS [Concomitant]
     Indication: HIV INFECTION

REACTIONS (2)
  - BLOOD CHOLESTEROL INCREASED [None]
  - FAT ATROPHY [None]
